FAERS Safety Report 9713539 (Version 1)
Quarter: 2013Q4

REPORT INFORMATION
  Report Type: Spontaneous
  Country: US (occurrence: US)
  Receive Date: 20131126
  Receipt Date: 20131126
  Transmission Date: 20140711
  Serious: Yes (Hospitalization)
  Sender: FDA-Public Use
  Company Number: US-PFIZER INC-2013336321

PATIENT
  Age: 73 Year
  Sex: Female
  Weight: 109 kg

DRUGS (3)
  1. LYRICA [Suspect]
     Indication: FIBROMYALGIA
     Dosage: UNK
     Dates: start: 2008, end: 2008
  2. SEROQUEL [Concomitant]
     Indication: SCHIZOPHRENIA
     Dosage: 200 MG, 2X/DAY
  3. PROZAC [Concomitant]
     Indication: SCHIZOPHRENIA
     Dosage: 20 MG, 1X/DAY

REACTIONS (5)
  - Loss of consciousness [Unknown]
  - Abdominal pain [Unknown]
  - Hepatic enzyme abnormal [Unknown]
  - Pain [Unknown]
  - Drug hypersensitivity [Unknown]
